FAERS Safety Report 11933617 (Version 1)
Quarter: 2016Q1

REPORT INFORMATION
  Report Type: Spontaneous
  Country: US (occurrence: US)
  Receive Date: 20160121
  Receipt Date: 20160121
  Transmission Date: 20160526
  Serious: No
  Sender: FDA-Public Use
  Company Number: US-BAYER-2016-007982

PATIENT
  Age: 71 Year
  Sex: Male
  Weight: 98.87 kg

DRUGS (2)
  1. MIRALAX [Suspect]
     Active Substance: POLYETHYLENE GLYCOL 3350
     Indication: HAEMORRHOID OPERATION
     Dosage: 1 DF, QD
     Route: 048
     Dates: start: 20160113
  2. LANTUS [Concomitant]
     Active Substance: INSULIN GLARGINE
     Route: 048

REACTIONS (5)
  - Off label use [None]
  - Abdominal discomfort [None]
  - Flatulence [None]
  - Product use issue [None]
  - Product use issue [None]

NARRATIVE: CASE EVENT DATE: 20160113
